FAERS Safety Report 7780623-2 (Version None)
Quarter: 2011Q3

REPORT INFORMATION
  Report Type: 
  Country: None (occurrence: None)
  Receive Date: 20110927
  Receipt Date: 20101207
  Transmission Date: 20111222
  Serious: No
  Sender: FDA-Public Use
  Company Number: US-BRISTOL-MYERS SQUIBB COMPANY-15380256

PATIENT
  Age: 52 Year
  Sex: Male
  Weight: 91 kg

DRUGS (3)
  1. CENTRUM [Concomitant]
  2. AVAPRO [Suspect]
     Dosage: USING 4-5 YRS, FORM: PILLS.
  3. PIROXICAM [Concomitant]

REACTIONS (3)
  - INFLUENZA LIKE ILLNESS [None]
  - DECREASED APPETITE [None]
  - FATIGUE [None]
